FAERS Safety Report 13427740 (Version 1)
Quarter: 2017Q2

REPORT INFORMATION
  Report Type: Spontaneous
  Country: US (occurrence: US)
  Receive Date: 20170411
  Receipt Date: 20170411
  Transmission Date: 20170830
  Serious: No
  Sender: FDA-Public Use
  Company Number: US-MALLINCKRODT-T201700435

PATIENT
  Age: 63 Year
  Sex: Female

DRUGS (4)
  1. IMIPRAMINE PAMOATE. [Suspect]
     Active Substance: IMIPRAMINE PAMOATE
     Indication: PRODUCT USED FOR UNKNOWN INDICATION
     Dosage: UNK
     Route: 065
  2. LAMOTRIGINE. [Concomitant]
     Active Substance: LAMOTRIGINE
     Dosage: 25 MG
  3. LITHIUM CARBONATE. [Concomitant]
     Active Substance: LITHIUM CARBONATE
     Dosage: 300 MG
  4. LEVOTHYROXINE. [Concomitant]
     Active Substance: LEVOTHYROXINE
     Dosage: 75 MCG

REACTIONS (9)
  - Drug administration error [Unknown]
  - Dependence [Unknown]
  - Pain [Unknown]
  - Tongue movement disturbance [Recovering/Resolving]
  - Insomnia [Recovered/Resolved]
  - Myalgia [Unknown]
  - Tongue biting [Recovering/Resolving]
  - Anxiety [Unknown]
  - Tremor [Recovered/Resolved]

NARRATIVE: CASE EVENT DATE: 20160802
